FAERS Safety Report 5406891-X (Version None)
Quarter: 2007Q3

REPORT INFORMATION
  Report Type: 
  Country: None (occurrence: None)
  Receive Date: 20070807
  Receipt Date: 20070801
  Transmission Date: 20080115
  Serious: Yes (Other)
  Sender: FDA-Public Use
  Company Number: US-BAYER-200711385BCC

PATIENT
  Age: 49 Year
  Sex: Female
  Weight: 79 kg

DRUGS (2)
  1. ALEVE [Suspect]
     Indication: ARTHRALGIA
     Route: 048
     Dates: start: 20010101, end: 20070101
  2. TRIAMTERENE [Concomitant]

REACTIONS (3)
  - HEPATIC ENZYME INCREASED [None]
  - HYPERTENSION [None]
  - LUNG NEOPLASM MALIGNANT [None]
